FAERS Safety Report 4642764-8 (Version None)
Quarter: 2005Q2

REPORT INFORMATION
  Report Type: 
  Country: None (occurrence: None)
  Receive Date: 20050422
  Receipt Date: 20050413
  Transmission Date: 20051028
  Serious: Yes (Hospitalization)
  Sender: FDA-Public Use
  Company Number: PHHO2005AR06175

PATIENT
  Sex: Female

DRUGS (7)
  1. TRYPTANOL [Concomitant]
  2. T4 [Concomitant]
  3. LORAZEPAM [Concomitant]
  4. RIVOTRIL [Concomitant]
  5. ALPLAX [Concomitant]
  6. OMEPRAZOLE [Concomitant]
  7. ZELMAC / HTF 919A [Suspect]
     Indication: CONSTIPATION
     Dosage: UNK, BID
     Route: 048
     Dates: start: 20050201

REACTIONS (2)
  - INTESTINAL OBSTRUCTION [None]
  - NON-HODGKIN'S LYMPHOMA [None]
